FAERS Safety Report 6174875-2 (Version None)
Quarter: 2009Q2

REPORT INFORMATION
  Report Type: 
  Country: None (occurrence: None)
  Receive Date: 20090430
  Receipt Date: 20081209
  Transmission Date: 20091009
  Serious: No
  Sender: FDA-Public Use
  Company Number: US-ASTRAZENECA-2008UW27329

PATIENT
  Age: 74 Year
  Sex: Male

DRUGS (4)
  1. NEXIUM [Suspect]
     Indication: OESOPHAGEAL DISORDER
     Dosage: 40 MG
     Route: 048
     Dates: start: 20060101
  2. LIPITOR [Concomitant]
  3. AMLODIPINE [Concomitant]
  4. CALCIUM PLUS D [Concomitant]

REACTIONS (1)
  - JOINT STIFFNESS [None]
